FAERS Safety Report 12198986 (Version 1)
Quarter: 2016Q1

REPORT INFORMATION
  Report Type: Spontaneous
  Country: US (occurrence: None)
  Receive Date: 20160321
  Receipt Date: 20160321
  Transmission Date: 20160526
  Serious: Yes (Disabling)
  Sender: FDA-Public Use
  Company Number: None

PATIENT
  Age: 21 Year
  Sex: Male
  Weight: 181.44 kg

DRUGS (4)
  1. SEROQUEL XR [Suspect]
     Active Substance: QUETIAPINE FUMARATE
     Indication: DEPRESSION
     Dosage: ONE PILL AT BED TIME QNCE DAILY
     Dates: start: 20160317, end: 20160318
  2. SEROQUEL XR [Suspect]
     Active Substance: QUETIAPINE FUMARATE
     Indication: BIPOLAR DISORDER
     Dosage: ONE PILL AT BED TIME QNCE DAILY
     Dates: start: 20160317, end: 20160318
  3. METFORMIN [Concomitant]
     Active Substance: METFORMIN HYDROCHLORIDE
  4. DEPAKOTE [Concomitant]
     Active Substance: DIVALPROEX SODIUM

REACTIONS (6)
  - Mania [None]
  - Hypersomnia [None]
  - Dysarthria [None]
  - Suicidal ideation [None]
  - Self injurious behaviour [None]
  - Aggression [None]

NARRATIVE: CASE EVENT DATE: 20160318
